FAERS Safety Report 17088874 (Version 2)
Quarter: 2020Q1

REPORT INFORMATION
  Report Type: Report from Study
  Country: IT (occurrence: IT)
  Receive Date: 20191128
  Receipt Date: 20200331
  Transmission Date: 20200409
  Serious: Yes (Death, Hospitalization, Other)
  Sender: FDA-Public Use
  Company Number: PHHY2015IT027194

PATIENT
  Age: 54 Year
  Sex: Male

DRUGS (2)
  1. GILENYA [Suspect]
     Active Substance: FINGOLIMOD HYDROCHLORIDE
     Indication: MULTIPLE SCLEROSIS
  2. GILENYA [Suspect]
     Active Substance: FINGOLIMOD HYDROCHLORIDE
     Indication: MULTIPLE SCLEROSIS
     Dosage: 0.5 MG, QD
     Route: 048
     Dates: start: 20130627, end: 20170825

REACTIONS (14)
  - Blood cholesterol increased [Unknown]
  - Alanine aminotransferase increased [Not Recovered/Not Resolved]
  - Candida infection [Unknown]
  - Blood alkaline phosphatase decreased [Unknown]
  - Aspartate aminotransferase increased [Recovered/Resolved]
  - Cryptococcosis [Unknown]
  - Pneumonia [Unknown]
  - Low density lipoprotein increased [Unknown]
  - Hypertension [Not Recovered/Not Resolved]
  - White blood cell count decreased [Unknown]
  - Aspartate aminotransferase increased [Unknown]
  - Death [Fatal]
  - Bradycardia [Recovered/Resolved]
  - Gamma-glutamyltransferase increased [Unknown]

NARRATIVE: CASE EVENT DATE: 20130627
